FAERS Safety Report 8014736-7 (Version None)
Quarter: 2011Q4

REPORT INFORMATION
  Report Type: 
  Country: None (occurrence: None)
  Receive Date: 20111229
  Receipt Date: 20111222
  Transmission Date: 20120403
  Serious: No
  Sender: FDA-Public Use
  Company Number: US-B.I. PHARMACEUTICALS,INC./RIDGEFIELD-2011-BP-27299BP

PATIENT
  Sex: Female

DRUGS (12)
  1. AMLODIPINE BESYLATE [Concomitant]
  2. ASPIRIN [Concomitant]
  3. SPIRIVA [Suspect]
     Indication: CHRONIC OBSTRUCTIVE PULMONARY DISEASE
     Dosage: 18 MCG
     Route: 055
     Dates: start: 20040101
  4. UNKNOWN MEDICATION [Concomitant]
     Indication: HYPERTENSION
  5. FUROSEMIDE [Concomitant]
     Dosage: 20 MG
  6. TRICOR [Concomitant]
     Indication: BLOOD CHOLESTEROL INCREASED
     Route: 048
  7. AMIODIPINE [Concomitant]
     Dosage: 10 MG
  8. VITAMIN D [Concomitant]
     Indication: ROUTINE HEALTH MAINTENANCE
  9. FENOFIBRATE [Concomitant]
     Dosage: 160 MG
  10. OMEPRAZOLE [Concomitant]
     Dosage: 20 MG
  11. FLUTICASONE FUROATE [Concomitant]
  12. ATENOLOL [Concomitant]

REACTIONS (1)
  - MACULAR DEGENERATION [None]
